FAERS Safety Report 24117092 (Version 2)
Quarter: 2024Q3

REPORT INFORMATION
  Report Type: Spontaneous
  Country: US (occurrence: US)
  Receive Date: 20240722
  Receipt Date: 20240828
  Transmission Date: 20241017
  Serious: Yes (Hospitalization, Other)
  Sender: CSL BEHRING
  Company Number: US-BEH-2024175581

PATIENT
  Sex: Female

DRUGS (2)
  1. HUMATE-P [Suspect]
     Active Substance: HUMAN COAGULATION FACTOR VIII/VON WILLEBRAND FACTOR COMPLEX
     Indication: Von Willebrand^s disease
     Dosage: 2400 RCOF UNITS (2160-2640), QMT (FOR 4 DAYS AND CONTINUE 3 MORE DAYS EVERY MONTH)
     Route: 042
     Dates: start: 202305
  2. SODIUM CHLORIDE [Concomitant]
     Active Substance: SODIUM CHLORIDE
     Dosage: 5 ML

REACTIONS (4)
  - Panic attack [Unknown]
  - Haemorrhage [Unknown]
  - Heavy menstrual bleeding [Unknown]
  - Heavy menstrual bleeding [Unknown]
